FAERS Safety Report 22045125 (Version 1)
Quarter: 2023Q1

REPORT INFORMATION
  Report Type: Other
  Country: US (occurrence: US)
  Receive Date: 20230228
  Receipt Date: 20230228
  Transmission Date: 20230417
  Serious: Yes (Hospitalization, Other)
  Sender: FDA-Public Use
  Company Number: US-UROVANT SCIENCES GMBH-202302-URV-000265

PATIENT
  Age: 22 Year
  Sex: Female

DRUGS (3)
  1. GEMTESA [Suspect]
     Active Substance: VIBEGRON
     Indication: Hypertonic bladder
     Dosage: 75 MG, QD
     Route: 048
     Dates: start: 20230210, end: 20230211
  2. SERTRALINE [Concomitant]
     Active Substance: SERTRALINE HYDROCHLORIDE
     Indication: Product used for unknown indication
  3. RIMEGEPANT [Concomitant]
     Active Substance: RIMEGEPANT
     Indication: Product used for unknown indication

REACTIONS (10)
  - Flushing [Recovered/Resolved]
  - Migraine [Not Recovered/Not Resolved]
  - Oxygen saturation decreased [Recovered/Resolved]
  - Dyspnoea [Recovered/Resolved]
  - Asthenia [Recovered/Resolved]
  - Blood pressure decreased [Recovered/Resolved]
  - Nausea [Recovered/Resolved]
  - Vomiting [Recovered/Resolved]
  - Heart rate increased [Recovered/Resolved]
  - Loss of consciousness [Recovered/Resolved]

NARRATIVE: CASE EVENT DATE: 20230211
